FAERS Safety Report 21302682 (Version 47)
Quarter: 2025Q4

REPORT INFORMATION
  Report Type: Spontaneous
  Country: IL (occurrence: IL)
  Receive Date: 20220907
  Receipt Date: 20251111
  Transmission Date: 20260118
  Serious: Yes (Hospitalization, Other)
  Sender: PFIZER
  Company Number: IL-PFIZER INC-2018384770

PATIENT
  Age: 40 Year
  Sex: Female

DRUGS (42)
  1. ELELYSO [Suspect]
     Active Substance: TALIGLUCERASE ALFA
     Indication: Gaucher^s disease
     Dosage: 1400/1200 ALTERNATELY EVERY TWO WEEKS
     Route: 042
     Dates: start: 20160301
  2. ELELYSO [Suspect]
     Active Substance: TALIGLUCERASE ALFA
     Dosage: 1400/1200 ALTERNATELY EVERY TWO WEEKS
     Route: 042
     Dates: start: 20181015
  3. ELELYSO [Suspect]
     Active Substance: TALIGLUCERASE ALFA
     Dosage: 1400/1200 ALTERNATELY TWICE A MONTH
     Route: 042
  4. ELELYSO [Suspect]
     Active Substance: TALIGLUCERASE ALFA
     Dosage: 1400/1200 ALTERNATELY TWICE A MONTH
     Route: 042
  5. ELELYSO [Suspect]
     Active Substance: TALIGLUCERASE ALFA
     Dosage: 6/7 VIALS ALTERNATELY TWICE A MONTH
     Route: 042
  6. ELELYSO [Suspect]
     Active Substance: TALIGLUCERASE ALFA
     Dosage: 1200/1400 UNITS ALTERNATELY TWICE A MONTH
     Route: 042
  7. ELELYSO [Suspect]
     Active Substance: TALIGLUCERASE ALFA
     Dosage: 1200/1400 UNITS ALTERNATELY TWICE A MONTH
     Route: 042
  8. ELELYSO [Suspect]
     Active Substance: TALIGLUCERASE ALFA
     Dosage: 1200/1400 UNITS ALTERNATELY TWICE A MONTH
     Route: 042
  9. ELELYSO [Suspect]
     Active Substance: TALIGLUCERASE ALFA
     Dosage: 1200/1400 UNITS ALTERNATELY TWICE A MONTH
     Route: 042
     Dates: start: 20200416
  10. ELELYSO [Suspect]
     Active Substance: TALIGLUCERASE ALFA
     Dosage: 1200/1400 UNITS ALTERNATELY TWICE A MONTH
     Route: 042
  11. ELELYSO [Suspect]
     Active Substance: TALIGLUCERASE ALFA
     Dosage: 1200/1400 UNITS ALTERNATELY TWICE A MONTH
     Route: 042
  12. ELELYSO [Suspect]
     Active Substance: TALIGLUCERASE ALFA
     Dosage: 1200/1400 UNITS ALTERNATELY TWICE A MONTH
     Route: 042
  13. ELELYSO [Suspect]
     Active Substance: TALIGLUCERASE ALFA
     Dosage: 1200/1400 UNITS ALTERNATELY TWICE A MONTH
     Route: 042
  14. ELELYSO [Suspect]
     Active Substance: TALIGLUCERASE ALFA
     Dosage: 7/6 VIALS ALTERNATELY PER MONTH
     Route: 042
  15. ELELYSO [Suspect]
     Active Substance: TALIGLUCERASE ALFA
     Dosage: 6/7 VIALS ALTERNATELY EVERY TWO WEEKS (1200/1400 IU)
     Route: 042
     Dates: start: 20220928
  16. ELELYSO [Suspect]
     Active Substance: TALIGLUCERASE ALFA
     Dosage: 1200 IU EOW/TWICE A MONTH
     Route: 042
  17. ELELYSO [Suspect]
     Active Substance: TALIGLUCERASE ALFA
     Dosage: 6/7 VIALS EOW (1200/1400 IU)
     Route: 042
  18. ELELYSO [Suspect]
     Active Substance: TALIGLUCERASE ALFA
     Dosage: 6/7 VILES EOW/TWICE A MONTH
     Route: 042
  19. ELELYSO [Suspect]
     Active Substance: TALIGLUCERASE ALFA
     Dosage: 6/7 VIALS EOW TWICE MONTHLY
     Route: 042
     Dates: start: 20220307, end: 20220307
  20. ELELYSO [Suspect]
     Active Substance: TALIGLUCERASE ALFA
     Dosage: 6/7 VIALS EOW TWICE MONTHLY
     Route: 042
     Dates: start: 20230404, end: 20230404
  21. ELELYSO [Suspect]
     Active Substance: TALIGLUCERASE ALFA
     Dosage: 6/7 VIALS EOW TWICE MONTHLY
     Route: 042
     Dates: start: 20230503, end: 20230503
  22. ELELYSO [Suspect]
     Active Substance: TALIGLUCERASE ALFA
     Dosage: 6/7 VIALS EOW TWICE MONTHLY
     Route: 042
     Dates: start: 20230627, end: 20230627
  23. ELELYSO [Suspect]
     Active Substance: TALIGLUCERASE ALFA
     Dosage: 7 VIALS
     Route: 042
     Dates: start: 20230815, end: 20230815
  24. ELELYSO [Suspect]
     Active Substance: TALIGLUCERASE ALFA
     Dosage: 200 IU TWICE A MONTH
     Route: 042
  25. ELELYSO [Suspect]
     Active Substance: TALIGLUCERASE ALFA
     Dosage: 1400 TWICE A MONTH
     Route: 042
  26. ELELYSO [Suspect]
     Active Substance: TALIGLUCERASE ALFA
     Dosage: 1200 TWICE A MONTH
     Route: 042
  27. ELELYSO [Suspect]
     Active Substance: TALIGLUCERASE ALFA
     Dosage: 1200 UN TWICE A MONTH
     Route: 042
     Dates: start: 20231122, end: 20231122
  28. ELELYSO [Suspect]
     Active Substance: TALIGLUCERASE ALFA
     Dosage: 1200 UN TWICE A MONTH
     Route: 042
  29. ELELYSO [Suspect]
     Active Substance: TALIGLUCERASE ALFA
     Dosage: 1200 UN TWICE A MONTH
     Route: 042
  30. ELELYSO [Suspect]
     Active Substance: TALIGLUCERASE ALFA
     Dosage: 1200 IU TWICE A MONTH
     Route: 042
     Dates: start: 20240519, end: 20240519
  31. ELELYSO [Suspect]
     Active Substance: TALIGLUCERASE ALFA
     Dosage: 1200 IU TWICE A MONTH
     Route: 042
     Dates: start: 20240616, end: 20240616
  32. ELELYSO [Suspect]
     Active Substance: TALIGLUCERASE ALFA
     Dosage: 1400 IU, TWICE MONTHLY
     Route: 042
     Dates: start: 20240707, end: 20240707
  33. ELELYSO [Suspect]
     Active Substance: TALIGLUCERASE ALFA
     Dosage: 1200UN/1400UN, TWICE MONTHLY
     Route: 042
     Dates: start: 20240728, end: 20240728
  34. ELELYSO [Suspect]
     Active Substance: TALIGLUCERASE ALFA
     Dosage: 1200UN/1400UN, TWICE MONTHLY
     Route: 042
     Dates: start: 20240828
  35. ELELYSO [Suspect]
     Active Substance: TALIGLUCERASE ALFA
     Dosage: 1200UN/1400UN, TWICE MONTHLY
     Route: 042
     Dates: start: 20241006, end: 20241006
  36. ELELYSO [Suspect]
     Active Substance: TALIGLUCERASE ALFA
     Dosage: 1200UN/1400UN, TWICE MONTHLY
     Route: 042
     Dates: start: 20241027, end: 20241027
  37. ELELYSO [Suspect]
     Active Substance: TALIGLUCERASE ALFA
     Dosage: 1200UN/1400UN, TWICE MONTHLY
     Route: 042
     Dates: start: 20250316
  38. ELELYSO [Suspect]
     Active Substance: TALIGLUCERASE ALFA
     Dosage: UNK
     Dates: start: 20250406, end: 2025
  39. ELELYSO [Suspect]
     Active Substance: TALIGLUCERASE ALFA
     Dosage: 1200UN/1400UN, TWICE MONTHLY
     Route: 042
     Dates: start: 20250515
  40. ELELYSO [Suspect]
     Active Substance: TALIGLUCERASE ALFA
     Dosage: 1200UN/1400UN, TWICE MONTHLY
     Route: 042
     Dates: start: 20250629
  41. ELELYSO [Suspect]
     Active Substance: TALIGLUCERASE ALFA
     Dosage: 1200/1400 UN TWICE A MONTH
     Route: 042
  42. ELELYSO [Suspect]
     Active Substance: TALIGLUCERASE ALFA
     Dosage: 1200/1400 UN TWICE A MONTH
     Route: 042
     Dates: start: 20251105, end: 20251105

REACTIONS (31)
  - Oesophageal disorder [Unknown]
  - Drug ineffective [Unknown]
  - Gastrooesophageal reflux disease [Unknown]
  - Insomnia [Unknown]
  - Dyspepsia [Unknown]
  - Headache [Recovered/Resolved]
  - Coronavirus infection [Recovered/Resolved]
  - Nasopharyngitis [Recovered/Resolved]
  - Malaise [Not Recovered/Not Resolved]
  - Fatigue [Unknown]
  - Abdominal pain [Recovered/Resolved]
  - Abdominal discomfort [Unknown]
  - Dizziness [Recovered/Resolved]
  - Feeling abnormal [Recovered/Resolved]
  - Oropharyngeal pain [Unknown]
  - Oesophageal achalasia [Unknown]
  - Dysphagia [Unknown]
  - Haematoma [Unknown]
  - Cough [Recovered/Resolved]
  - Viral infection [Recovered/Resolved]
  - Coronavirus infection [Recovered/Resolved with Sequelae]
  - Asthenia [Unknown]
  - Inflammation [Recovered/Resolved]
  - Swelling [Recovered/Resolved]
  - Noninfective sialoadenitis [Unknown]
  - Salivary gland enlargement [Unknown]
  - Product use issue [Unknown]
  - Device breakage [Unknown]
  - Inappropriate schedule of product administration [Unknown]
  - Underdose [Unknown]
  - Drug monitoring procedure not performed [Unknown]

NARRATIVE: CASE EVENT DATE: 20230301
